FAERS Safety Report 5637252-6 (Version None)
Quarter: 2008Q1

REPORT INFORMATION
  Report Type: 
  Country: None (occurrence: None)
  Receive Date: 20080225
  Receipt Date: 20070813
  Transmission Date: 20080703
  Serious: No
  Sender: FDA-Public Use
  Company Number: US-BRISTOL-MYERS SQUIBB COMPANY-13876446

PATIENT
  Age: 26 Year
  Sex: Female

DRUGS (1)
  1. KENALOG-10 [Suspect]
     Dates: start: 20070610

REACTIONS (1)
  - STAPHYLOCOCCAL INFECTION [None]
